FAERS Safety Report 23173260 (Version 1)
Quarter: 2023Q4

REPORT INFORMATION
  Report Type: Report from Study
  Country: KR (occurrence: KR)
  Receive Date: 20231111
  Receipt Date: 20231111
  Transmission Date: 20240109
  Serious: Yes (Other)
  Sender: FDA-Public Use
  Company Number: KR-002147023-NVSC2023KR240555

PATIENT
  Age: 56 Year
  Sex: Female

DRUGS (4)
  1. ARCAPTA NEOHALER [Suspect]
     Active Substance: INDACATEROL MALEATE
     Indication: Asthma
     Dosage: 150/50/160 UG, QD
     Dates: start: 20220615
  2. FLUTICASONE FUROATE\VILANTEROL TRIFENATATE [Concomitant]
     Active Substance: FLUTICASONE FUROATE\VILANTEROL TRIFENATATE
     Indication: Asthma
     Dosage: 1 DOSAGE FORM, QD (1 PUFF, 100)
     Dates: start: 20220404, end: 20230330
  3. SPIRIVA [Concomitant]
     Active Substance: TIOTROPIUM BROMIDE MONOHYDRATE
     Indication: Asthma
     Dosage: 1 DOSAGE FORM, QD (1 PUFF)
     Dates: start: 20220404, end: 20230330
  4. RABIET [Concomitant]
     Indication: Gastrooesophageal reflux disease
     Dosage: 1 DOSAGE FORM, QD
     Route: 048
     Dates: start: 20230331, end: 20230721

REACTIONS (1)
  - Bronchopulmonary aspergillosis allergic [Not Recovered/Not Resolved]

NARRATIVE: CASE EVENT DATE: 20220810
